FAERS Safety Report 11495902 (Version 5)
Quarter: 2017Q3

REPORT INFORMATION
  Report Type: Spontaneous
  Country: US (occurrence: US)
  Receive Date: 20150911
  Receipt Date: 20170915
  Transmission Date: 20171127
  Serious: Yes (Other)
  Sender: FDA-Public Use
  Company Number: US-PFIZER INC-2015274564

PATIENT
  Age: 80 Year
  Sex: Male

DRUGS (3)
  1. HEPARIN SODIUM. [Suspect]
     Active Substance: HEPARIN SODIUM
     Indication: DEEP VEIN THROMBOSIS
  2. HEPARIN SODIUM. [Suspect]
     Active Substance: HEPARIN SODIUM
     Indication: PULMONARY EMBOLISM
     Dosage: UNK
     Dates: start: 201504
  3. PRIMIDONE. [Suspect]
     Active Substance: PRIMIDONE
     Dosage: UNK
     Dates: start: 2012

REACTIONS (4)
  - Heparin-induced thrombocytopenia [Unknown]
  - Drug hypersensitivity [Unknown]
  - Blood count abnormal [Unknown]
  - Blood pressure decreased [Unknown]
